FAERS Safety Report 16271540 (Version 2)
Quarter: 2019Q2

REPORT INFORMATION
  Report Type: Spontaneous
  Country: US (occurrence: US)
  Receive Date: 20190506
  Receipt Date: 20190528
  Transmission Date: 20190711
  Serious: Yes (Other)
  Sender: FDA-Public Use
  Company Number: US-ABBVIE-19K-163-2764031-00

PATIENT
  Age: 67 Year
  Sex: Female

DRUGS (4)
  1. METHOTREXATE. [Suspect]
     Active Substance: METHOTREXATE
     Indication: PRODUCT USED FOR UNKNOWN INDICATION
     Route: 065
     Dates: start: 2018
  2. ENBREL [Suspect]
     Active Substance: ETANERCEPT
     Indication: RHEUMATOID ARTHRITIS
     Route: 065
     Dates: start: 20180621, end: 2018
  3. ENBREL [Suspect]
     Active Substance: ETANERCEPT
     Route: 065
     Dates: start: 20190410, end: 201904
  4. HUMIRA [Suspect]
     Active Substance: ADALIMUMAB
     Indication: PRODUCT USED FOR UNKNOWN INDICATION
     Route: 058

REACTIONS (8)
  - Rheumatoid arthritis [Not Recovered/Not Resolved]
  - Anaphylactic reaction [Recovered/Resolved]
  - Rash generalised [Unknown]
  - Contraindicated product administered [Unknown]
  - Arthropathy [Not Recovered/Not Resolved]
  - Therapeutic product effect incomplete [Unknown]
  - Angioedema [Recovered/Resolved]
  - Rash [Recovered/Resolved]

NARRATIVE: CASE EVENT DATE: 2018
